FAERS Safety Report 8175234-3 (Version None)
Quarter: 2012Q1

REPORT INFORMATION
  Report Type: 
  Country: None (occurrence: None)
  Receive Date: 20120229
  Receipt Date: 20120221
  Transmission Date: 20120608
  Serious: Yes (Hospitalization, Other)
  Sender: FDA-Public Use
  Company Number: US-ABBOTT-12P-163-0908281-00

PATIENT
  Sex: Female
  Weight: 159.81 kg

DRUGS (13)
  1. HUMIRA [Suspect]
     Indication: PSORIASIS
     Dates: end: 20100301
  2. AMLODIPINE [Concomitant]
     Indication: BLOOD PRESSURE
  3. HYDROCHLOROTHIAZIDE [Concomitant]
     Indication: BLOOD PRESSURE
  4. SYMBICORT [Concomitant]
     Indication: ASTHMA
  5. BYETTA [Concomitant]
     Indication: DIABETES MELLITUS
  6. ALBUTEROL [Concomitant]
     Indication: ASTHMA
  7. BACLOFEN [Concomitant]
     Indication: PRODUCT USED FOR UNKNOWN INDICATION
  8. METFORMIN HCL [Concomitant]
     Indication: DIABETES MELLITUS
  9. GABAPENTIN [Concomitant]
     Indication: CARPAL TUNNEL SYNDROME
  10. LANTUS [Concomitant]
     Indication: DIABETES MELLITUS
  11. NOVOLOG [Concomitant]
     Indication: DIABETES MELLITUS
  12. PRAVASTATIN [Concomitant]
     Indication: BLOOD CHOLESTEROL
  13. CELEXA [Concomitant]
     Indication: DEPRESSION

REACTIONS (5)
  - PSORIASIS [None]
  - LIMB CRUSHING INJURY [None]
  - FALL [None]
  - STAPHYLOCOCCAL INFECTION [None]
  - BACK PAIN [None]
